FAERS Safety Report 10731116 (Version 2)
Quarter: 2015Q1

REPORT INFORMATION
  Report Type: Report from Study
  Country: CA (occurrence: CA)
  Receive Date: 20150122
  Receipt Date: 20150127
  Transmission Date: 20150721
  Serious: Yes (Hospitalization, Other)
  Sender: FDA-Public Use
  Company Number: CA-ABBVIE-11P-028-0717810-00

PATIENT
  Age: 47 Year
  Sex: Male
  Weight: 85.35 kg

DRUGS (10)
  1. METHOTREXATE [Concomitant]
     Active Substance: METHOTREXATE
     Indication: RHEUMATOID ARTHRITIS
     Route: 058
     Dates: start: 2001
  2. PREDNISONE. [Concomitant]
     Active Substance: PREDNISONE
     Indication: POLYMYOSITIS
  3. CYCLOSPORIN [Concomitant]
     Active Substance: CYCLOSPORINE
     Indication: IMMUNOSUPPRESSANT DRUG THERAPY
     Dosage: 1 TAB AM + 1.5 TAB PM
     Dates: start: 2001
  4. PREDNISONE. [Concomitant]
     Active Substance: PREDNISONE
     Indication: RHEUMATOID ARTHRITIS
     Dates: start: 2001
  5. METHOTREXATE [Concomitant]
     Active Substance: METHOTREXATE
     Indication: POLYMYOSITIS
  6. LEFLUNOMIDE. [Concomitant]
     Active Substance: LEFLUNOMIDE
     Indication: RHEUMATOID ARTHRITIS
     Dates: start: 2005, end: 20110309
  7. HUMIRA [Suspect]
     Active Substance: ADALIMUMAB
     Route: 058
     Dates: start: 201410
  8. FOLIC ACID. [Concomitant]
     Active Substance: FOLIC ACID
     Indication: DRUG LEVEL
     Route: 048
     Dates: start: 2001
  9. HUMIRA [Suspect]
     Active Substance: ADALIMUMAB
     Indication: RHEUMATOID ARTHRITIS
     Route: 058
     Dates: start: 20071121
  10. HYDROXYCHLOROQUINE [Concomitant]
     Active Substance: HYDROXYCHLOROQUINE
     Indication: RHEUMATOID ARTHRITIS
     Route: 048
     Dates: end: 20110309

REACTIONS (7)
  - Myocardial infarction [Recovered/Resolved]
  - Stress [Unknown]
  - Coronary artery occlusion [Unknown]
  - Palpitations [Not Recovered/Not Resolved]
  - Cardiac disorder [Unknown]
  - Myocardial infarction [Recovered/Resolved]
  - Myocardial infarction [Unknown]

NARRATIVE: CASE EVENT DATE: 201103
